FAERS Safety Report 16925331 (Version 2)
Quarter: 2019Q4

REPORT INFORMATION
  Report Type: Spontaneous
  Country: US (occurrence: US)
  Receive Date: 20191016
  Receipt Date: 20191108
  Transmission Date: 20200122
  Serious: No
  Sender: FDA-Public Use
  Company Number: US-GLAXOSMITHKLINE-US2019186020

PATIENT
  Sex: Male

DRUGS (1)
  1. VENTOLIN HFA [Suspect]
     Active Substance: ALBUTEROL SULFATE
     Indication: PRODUCT USED FOR UNKNOWN INDICATION
     Dosage: UNK (7 OR 8 TIMES A DAY)
     Route: 065
     Dates: start: 20181031

REACTIONS (4)
  - Wrong technique in product usage process [Unknown]
  - Underdose [Unknown]
  - Overdose [Unknown]
  - Drug ineffective [Unknown]
